FAERS Safety Report 8964256 (Version 2)
Quarter: 2013Q3

REPORT INFORMATION
  Report Type: Report from Study
  Country: RU (occurrence: RU)
  Receive Date: 20121213
  Receipt Date: 20130919
  Transmission Date: 20140515
  Serious: Yes (Other)
  Sender: FDA-Public Use
  Company Number: RU-MERCK-1211RUS007317

PATIENT
  Age: 41 Year
  Sex: Male
  Weight: 110.1 kg

DRUGS (9)
  1. BLINDED BOCEPREVIR [Suspect]
     Indication: CHRONIC HEPATITIS C
     Dosage: UNK
     Route: 048
     Dates: start: 20120625
  2. BLINDED PEGINTERFERON ALFA-2B [Suspect]
     Indication: CHRONIC HEPATITIS C
     Dosage: UNK
     Route: 048
     Dates: start: 20120625
  3. BLINDED PLACEBO [Suspect]
     Indication: CHRONIC HEPATITIS C
     Dosage: UNK
     Route: 048
     Dates: start: 20120625
  4. BLINDED POST TRIAL THERAPY [Suspect]
     Indication: CHRONIC HEPATITIS C
     Dosage: UNK
     Route: 048
     Dates: start: 20120625
  5. BLINDED PRE TRIAL THERAPY [Suspect]
     Indication: CHRONIC HEPATITIS C
     Dosage: UNK
     Route: 048
     Dates: start: 20120625
  6. BLINDED RIBAVIRIN [Suspect]
     Indication: CHRONIC HEPATITIS C
     Dosage: UNK
     Route: 048
     Dates: start: 20120625
  7. PEGINTERFERON ALFA-2B [Suspect]
     Indication: CHRONIC HEPATITIS C
     Dosage: FORMULATION: REDIPEN,150 MCG,0.5 ML, QW,DOSE AT ONSET: 120 MCG,DOSE IN SERIES: 1OF 5
     Route: 058
     Dates: start: 20120419
  8. RIBAVIRIN [Suspect]
     Indication: CHRONIC HEPATITIS C
     Dosage: 600 MG IN MORNING, 800MG IN EVENING, DOSE IN SERIES: 1 OF 2, DOSE AT ONSET: 1400 MG/DAILY
     Route: 048
     Dates: start: 20120419
  9. FLUOCINOLONE ACETONIDE [Concomitant]
     Indication: RASH
     Route: 061

REACTIONS (1)
  - Neutropenia [Recovered/Resolved]
